FAERS Safety Report 6139900-3 (Version None)
Quarter: 2009Q1

REPORT INFORMATION
  Report Type: 
  Country: None (occurrence: None)
  Receive Date: 20090324
  Receipt Date: 20090317
  Transmission Date: 20090719
  Serious: Yes (Hospitalization)
  Sender: FDA-Public Use
  Company Number: GXKR2009JP03398

PATIENT
  Age: 66 Year
  Sex: Female

DRUGS (2)
  1. ACETYLSALICYLIC ACID SRT [Suspect]
     Indication: CEREBRAL INFARCTION
     Dosage: 81 MG/DAY; 100 MG/DAY,
     Dates: start: 20030728
  2. ACETYLSALICYLIC ACID SRT [Suspect]
     Indication: CEREBRAL INFARCTION
     Dosage: 81 MG/DAY; 100 MG/DAY,
     Dates: start: 20040918

REACTIONS (9)
  - BRAIN OEDEMA [None]
  - CEREBRAL HAEMATOMA [None]
  - GAIT DISTURBANCE [None]
  - HYPERTENSION [None]
  - INTRACRANIAL PRESSURE INCREASED [None]
  - MUSCULAR WEAKNESS [None]
  - NEOPLASM PROGRESSION [None]
  - SUBDURAL HAEMORRHAGE [None]
  - TUMOUR HAEMORRHAGE [None]
